FAERS Safety Report 15758826 (Version 1)
Quarter: 2018Q4

REPORT INFORMATION
  Report Type: Spontaneous
  Country: GB (occurrence: GB)
  Receive Date: 20181225
  Receipt Date: 20181225
  Transmission Date: 20190205
  Serious: Yes (Hospitalization, Other)
  Sender: FDA-Public Use
  Company Number: GXKR2008GB04092

PATIENT
  Age: 35 Year
  Sex: Female

DRUGS (1)
  1. RISPERIDONE. [Suspect]
     Active Substance: RISPERIDONE
     Indication: BIPOLAR DISORDER
     Dosage: UNK
     Route: 065

REACTIONS (6)
  - Hyperprolactinaemia [Recovered/Resolved]
  - Mania [Unknown]
  - Delusion [Recovered/Resolved]
  - Somatic symptom disorder of pregnancy [Recovered/Resolved]
  - Amenorrhoea [Recovered/Resolved]
  - Thinking abnormal [Recovered/Resolved]
